FAERS Safety Report 6955928-5 (Version None)
Quarter: 2010Q3

REPORT INFORMATION
  Report Type: 
  Country: None (occurrence: None)
  Receive Date: 20100830
  Receipt Date: 20100819
  Transmission Date: 20110219
  Serious: Yes (Disabling)
  Sender: FDA-Public Use
  Company Number: NL-SANOFI-AVENTIS-2010SA049397

PATIENT
  Age: 54 Year
  Sex: Male

DRUGS (4)
  1. OXALIPLATIN [Suspect]
     Route: 042
     Dates: start: 20100101, end: 20100101
  2. OXALIPLATIN [Suspect]
     Route: 042
  3. CAPECITABINE [Suspect]
     Route: 048
     Dates: start: 20100101, end: 20100101
  4. CAPECITABINE [Suspect]
     Route: 048

REACTIONS (1)
  - OPTIC ISCHAEMIC NEUROPATHY [None]
